FAERS Safety Report 12941303 (Version 8)
Quarter: 2017Q1

REPORT INFORMATION
  Report Type: Spontaneous
  Country: US (occurrence: US)
  Receive Date: 20161114
  Receipt Date: 20170301
  Transmission Date: 20170428
  Serious: No
  Sender: FDA-Public Use
  Company Number: US-ASTRAZENECA-2016SF16421

PATIENT
  Age: 25601 Day
  Sex: Female
  Weight: 159 kg

DRUGS (3)
  1. ARMOUR THYROID [Concomitant]
     Active Substance: THYROID, PORCINE
  2. PRILOSEC OTC [Suspect]
     Active Substance: OMEPRAZOLE MAGNESIUM
     Indication: GASTROOESOPHAGEAL REFLUX DISEASE
     Route: 048
     Dates: start: 20161019, end: 20161119
  3. PRILOSEC OTC [Suspect]
     Active Substance: OMEPRAZOLE MAGNESIUM
     Indication: GASTROOESOPHAGEAL REFLUX DISEASE
     Route: 048
     Dates: start: 20161019, end: 20161119

REACTIONS (42)
  - Rhinalgia [Not Recovered/Not Resolved]
  - Rash erythematous [Recovered/Resolved]
  - Facial pain [Not Recovered/Not Resolved]
  - Impetigo [Recovering/Resolving]
  - Dermatitis contact [Recovering/Resolving]
  - Fatigue [Not Recovered/Not Resolved]
  - Nasal crusting [Not Recovered/Not Resolved]
  - Nasal mucosal disorder [Not Recovered/Not Resolved]
  - Erythema [Not Recovered/Not Resolved]
  - Exfoliative rash [Recovering/Resolving]
  - Skin burning sensation [Not Recovered/Not Resolved]
  - Dermatitis [Recovering/Resolving]
  - Blister [Not Recovered/Not Resolved]
  - Hypoaesthesia oral [Unknown]
  - Haemorrhage [Not Recovered/Not Resolved]
  - Epistaxis [Not Recovered/Not Resolved]
  - Nasal mucosal hypertrophy [Not Recovered/Not Resolved]
  - Eye disorder [Unknown]
  - Skin irritation [Recovering/Resolving]
  - Eye irritation [Not Recovered/Not Resolved]
  - Swelling face [Not Recovered/Not Resolved]
  - Lip swelling [Not Recovered/Not Resolved]
  - Eczema [Recovering/Resolving]
  - Rash vesicular [Recovering/Resolving]
  - Cheilitis [Not Recovered/Not Resolved]
  - Oral discomfort [Not Recovered/Not Resolved]
  - Dry skin [Not Recovered/Not Resolved]
  - Rash [Unknown]
  - Pruritus [Not Recovered/Not Resolved]
  - Ocular hyperaemia [Not Recovered/Not Resolved]
  - Rhinitis [Not Recovered/Not Resolved]
  - Herpes zoster [Unknown]
  - Product use issue [Unknown]
  - Eyelid margin crusting [Not Recovered/Not Resolved]
  - Rash pruritic [Recovering/Resolving]
  - Headache [Not Recovered/Not Resolved]
  - Burning sensation [Not Recovered/Not Resolved]
  - Eyelid irritation [Not Recovered/Not Resolved]
  - Skin exfoliation [Not Recovered/Not Resolved]
  - Lacrimation increased [Not Recovered/Not Resolved]
  - Scar [Not Recovered/Not Resolved]
  - Anxiety [Not Recovered/Not Resolved]

NARRATIVE: CASE EVENT DATE: 20161022
